FAERS Safety Report 7037790-8 (Version None)
Quarter: 2010Q4

REPORT INFORMATION
  Report Type: 
  Country: None (occurrence: None)
  Receive Date: 20101011
  Receipt Date: 20101007
  Transmission Date: 20110411
  Serious: Yes (Hospitalization)
  Sender: FDA-Public Use
  Company Number: FR-WYE-G06783710

PATIENT
  Age: 32 Month
  Sex: Male

DRUGS (2)
  1. IBUPROFEN (ADVIL) [Suspect]
     Indication: PYREXIA
     Dosage: 2 INTAKES OF UNKNOWN DOSES PER DAY
     Route: 048
     Dates: start: 20100901, end: 20101001
  2. DOLIPRANE [Concomitant]
     Indication: PYREXIA
     Dosage: 2 INTAKES OF UNKNOWN DOSES PER DAY
     Route: 048
     Dates: start: 20100901, end: 20101001

REACTIONS (2)
  - EAR INFECTION [None]
  - MASTOIDITIS [None]
